FAERS Safety Report 13003690 (Version 5)
Quarter: 2019Q4

REPORT INFORMATION
  Report Type: Report from Study
  Country: US (occurrence: US)
  Receive Date: 20161206
  Receipt Date: 20191009
  Transmission Date: 20200122
  Serious: Yes (Hospitalization)
  Sender: FDA-Public Use
  Company Number: US-ACTELION-A-US2016-132723

PATIENT
  Age: 64 Year
  Sex: Female
  Weight: 49.89 kg

DRUGS (2)
  1. OPSUMIT [Suspect]
     Active Substance: MACITENTAN
     Dosage: UNK
     Route: 048
  2. OPSUMIT [Suspect]
     Active Substance: MACITENTAN
     Indication: PULMONARY HYPERTENSION
     Dosage: 10 MG, QD
     Route: 048
     Dates: start: 20160218

REACTIONS (20)
  - Syncope [Unknown]
  - Delusion [Unknown]
  - Dyspnoea [Unknown]
  - Product dose omission [Unknown]
  - Feeling abnormal [Unknown]
  - Asthma [Unknown]
  - Chest discomfort [Unknown]
  - Dizziness [Unknown]
  - Stress [Unknown]
  - Hypoxia [Unknown]
  - Somnolence [Unknown]
  - Confusional state [Unknown]
  - Heart rate increased [Unknown]
  - Fatigue [Unknown]
  - Respiratory disorder [Unknown]
  - Oxygen saturation decreased [Unknown]
  - Malaise [Unknown]
  - Nasopharyngitis [Unknown]
  - Pulmonary fibrosis [Unknown]
  - Cough [Unknown]

NARRATIVE: CASE EVENT DATE: 20170402
